FAERS Safety Report 5193863-6 (Version None)
Quarter: 2006Q4

REPORT INFORMATION
  Report Type: 
  Country: None (occurrence: None)
  Receive Date: 20061228
  Receipt Date: 20061202
  Transmission Date: 20070319
  Serious: Yes (Hospitalization)
  Sender: FDA-Public Use
  Company Number: US-AMGEN-US202160

PATIENT
  Sex: Male
  Weight: 62.2 kg

DRUGS (9)
  1. SENSIPAR [Suspect]
     Indication: HYPERPARATHYROIDISM SECONDARY
     Route: 048
     Dates: start: 20060613, end: 20061130
  2. HECTORAL [Concomitant]
     Dates: start: 20060613
  3. LUNESTA [Concomitant]
     Dates: start: 20061023
  4. METOPROLOL SUCCINATE [Concomitant]
     Dates: start: 20060613
  5. NIFEDIPINE [Concomitant]
     Dates: start: 20060613
  6. AMPHOJEL [Concomitant]
     Dates: start: 20060822
  7. CATAPRES [Concomitant]
     Dates: start: 20060725
  8. COUMADIN [Concomitant]
     Dates: start: 20060607
  9. EPOGEN [Concomitant]
     Dates: start: 20060527

REACTIONS (4)
  - ARRHYTHMIA [None]
  - CONVULSION [None]
  - HYPOCALCAEMIA [None]
  - MUSCLE SPASMS [None]
